FAERS Safety Report 4448006-0 (Version None)
Quarter: 2004Q3

REPORT INFORMATION
  Report Type: 
  Country: None (occurrence: None)
  Receive Date: 20040913
  Receipt Date: 20040907
  Transmission Date: 20050211
  Serious: Yes (Hospitalization)
  Sender: FDA-Public Use
  Company Number: GB-MERCK-0409GBR00080

PATIENT
  Age: 81 Year
  Sex: Male

DRUGS (4)
  1. ASPIRIN [Concomitant]
     Indication: BLOOD PRESSURE INCREASED
     Route: 048
  2. ATENOLOL [Concomitant]
     Indication: BLOOD PRESSURE INCREASED
     Route: 048
  3. NIFEDIPINE [Concomitant]
     Indication: BLOOD PRESSURE INCREASED
     Route: 048
  4. ZOCOR [Suspect]
     Indication: HYPERCHOLESTEROLAEMIA
     Route: 048
     Dates: start: 20040705, end: 20040715

REACTIONS (3)
  - ABDOMINAL PAIN [None]
  - CHEST PAIN [None]
  - PAIN IN EXTREMITY [None]
